FAERS Safety Report 10461274 (Version 2)
Quarter: 2014Q4

REPORT INFORMATION
  Report Type: Report from Study
  Country: NZ (occurrence: NZ)
  Receive Date: 20140918
  Receipt Date: 20141028
  Transmission Date: 20150528
  Serious: Yes (Death, Other)
  Sender: FDA-Public Use
  Company Number: PHHY2014NZ120652

PATIENT
  Age: 42 Year
  Sex: Male
  Weight: 142.4 kg

DRUGS (10)
  1. SENOSIDE [Concomitant]
     Indication: PRODUCT USED FOR UNKNOWN INDICATION
     Route: 065
  2. CLOZARIL [Suspect]
     Active Substance: CLOZAPINE
     Dosage: 325 MG, QD (RE TITRATED)
     Route: 048
     Dates: start: 201402
  3. METFORMIN [Concomitant]
     Active Substance: METFORMIN HYDROCHLORIDE
     Indication: PRODUCT USED FOR UNKNOWN INDICATION
     Dosage: 1000 MG, BID
     Route: 065
  4. SIMVASTATIN. [Concomitant]
     Active Substance: SIMVASTATIN
     Indication: PRODUCT USED FOR UNKNOWN INDICATION
     Dosage: 20 MG, QD
     Route: 065
  5. DOCUSATE [Concomitant]
     Active Substance: DOCUSATE
     Indication: PRODUCT USED FOR UNKNOWN INDICATION
     Route: 065
  6. OMEPRAZOLE. [Concomitant]
     Active Substance: OMEPRAZOLE
     Indication: PRODUCT USED FOR UNKNOWN INDICATION
     Dosage: 20 MG, QD
     Route: 065
  7. BENZTROPINE [Concomitant]
     Active Substance: BENZTROPINE
     Indication: PRODUCT USED FOR UNKNOWN INDICATION
     Dosage: 2 MG, QD
     Route: 065
  8. CLONIDINE. [Concomitant]
     Active Substance: CLONIDINE
     Indication: PRODUCT USED FOR UNKNOWN INDICATION
     Route: 065
  9. CLOZARIL [Suspect]
     Active Substance: CLOZAPINE
     Indication: SCHIZOPHRENIA
     Dosage: 325 MG, QD
     Route: 048
     Dates: start: 20030610
  10. LACTULOSE. [Concomitant]
     Active Substance: LACTULOSE
     Indication: PRODUCT USED FOR UNKNOWN INDICATION
     Route: 065

REACTIONS (13)
  - Death [Fatal]
  - Obesity [Unknown]
  - White blood cell count increased [Unknown]
  - Schizophrenia [Unknown]
  - Hyperlipidaemia [Unknown]
  - General physical health deterioration [Unknown]
  - Sleep apnoea syndrome [Unknown]
  - Skin infection [Unknown]
  - Antipsychotic drug level above therapeutic [Unknown]
  - Blood creatine phosphokinase increased [Unknown]
  - Diabetes mellitus [Unknown]
  - Glucose tolerance impaired [Unknown]
  - Lower respiratory tract infection [Unknown]

NARRATIVE: CASE EVENT DATE: 20140721
